FAERS Safety Report 5651996-1 (Version None)
Quarter: 2008Q1

REPORT INFORMATION
  Report Type: 
  Country: None (occurrence: None)
  Receive Date: 20080305
  Receipt Date: 20080222
  Transmission Date: 20080703
  Serious: Yes (Hospitalization, Other)
  Sender: FDA-Public Use
  Company Number: DK-PFIZER INC-2008009118

PATIENT
  Sex: Female
  Weight: 60 kg

DRUGS (2)
  1. CHANTIX [Suspect]
     Indication: SMOKING CESSATION THERAPY
     Route: 048
     Dates: start: 20071230, end: 20080112
  2. IMADRAX [Concomitant]
     Route: 048
     Dates: start: 20080107, end: 20080112

REACTIONS (6)
  - DRY EYE [None]
  - EYE ALLERGY [None]
  - EYE OEDEMA [None]
  - HEADACHE [None]
  - OEDEMA PERIPHERAL [None]
  - WEIGHT INCREASED [None]
